FAERS Safety Report 9509223 (Version 1)
Quarter: 2013Q3

REPORT INFORMATION
  Report Type: Spontaneous
  Country: US (occurrence: US)
  Receive Date: 20130909
  Receipt Date: 20130909
  Transmission Date: 20140515
  Serious: No
  Sender: FDA-Public Use
  Company Number: US-BRISTOL-MYERS SQUIBB COMPANY-19009992

PATIENT
  Age: 13 Year
  Sex: Male

DRUGS (2)
  1. ABILIFY [Suspect]
     Indication: AUTISM SPECTRUM DISORDER
     Dosage: DOSE REDUCED TO 10 MG.
  2. TRAZODONE HCL [Concomitant]

REACTIONS (3)
  - Off label use [Unknown]
  - Dyskinesia [Unknown]
  - Dysgraphia [Unknown]
